FAERS Safety Report 9165832 (Version 3)
Quarter: 2013Q3

REPORT INFORMATION
  Report Type: Spontaneous
  Country: US (occurrence: US)
  Receive Date: 20130315
  Receipt Date: 20130716
  Transmission Date: 20140515
  Serious: Yes (Hospitalization, Other)
  Sender: FDA-Public Use
  Company Number: US-ROCHE-1202295

PATIENT
  Sex: Female
  Weight: 181.5 kg

DRUGS (5)
  1. XOLAIR [Suspect]
     Indication: CHRONIC OBSTRUCTIVE PULMONARY DISEASE
     Route: 065
  2. XOLAIR [Suspect]
     Indication: ASTHMA
     Route: 058
     Dates: start: 20130603
  3. PREDNISONE [Concomitant]
     Route: 065
  4. PREDNISONE [Concomitant]
     Route: 065
  5. MUCINEX [Concomitant]
     Route: 065

REACTIONS (14)
  - Pain [Unknown]
  - Weight decreased [Not Recovered/Not Resolved]
  - Asthenia [Not Recovered/Not Resolved]
  - Fibromyalgia [Unknown]
  - Bedridden [Unknown]
  - Feeling abnormal [Unknown]
  - Headache [Unknown]
  - Herpes zoster [Recovered/Resolved]
  - Cough [Recovered/Resolved]
  - Sinus congestion [Recovered/Resolved]
  - Asthenia [Unknown]
  - Dyspnoea [Unknown]
  - Tremor [Unknown]
  - Fatigue [Not Recovered/Not Resolved]
